FAERS Safety Report 7974534-7 (Version None)
Quarter: 2011Q4

REPORT INFORMATION
  Report Type: 
  Country: None (occurrence: None)
  Receive Date: 20111213
  Receipt Date: 20111205
  Transmission Date: 20120403
  Serious: Yes (Hospitalization, Other)
  Sender: FDA-Public Use
  Company Number: US-ABBOTT-11P-163-0726242-00

PATIENT
  Sex: Female
  Weight: 76.272 kg

DRUGS (11)
  1. UR CREAM [Concomitant]
     Indication: PSORIASIS
  2. FOSAMAX [Concomitant]
     Indication: OSTEOPOROSIS
  3. HUMIRA [Suspect]
     Dates: end: 20111001
  4. PREDNISOLONE [Suspect]
     Indication: PNEUMONIA
     Dates: start: 20100501, end: 20100501
  5. MICARDIS [Concomitant]
     Indication: HYPERTENSION
  6. CARVEDILOL [Suspect]
     Indication: HYPERTENSION
     Dates: start: 20100501, end: 20100501
  7. CLOBETASOL [Concomitant]
     Indication: PSORIASIS
  8. CITALOPRAM [Concomitant]
     Indication: ANXIETY
  9. HUMIRA [Suspect]
     Indication: PSORIATIC ARTHROPATHY
     Dates: start: 20080101
  10. HUMIRA [Suspect]
     Indication: PSORIASIS
     Dates: end: 20100501
  11. UNKNOWN MEDICATION [Concomitant]
     Indication: BLOOD PRESSURE

REACTIONS (25)
  - BLOOD PRESSURE INCREASED [None]
  - PNEUMONIA [None]
  - BRONCHITIS [None]
  - COUGH [None]
  - HEAT STROKE [None]
  - BLISTER [None]
  - HALLUCINATION [None]
  - PHLEBITIS [None]
  - STAPHYLOCOCCAL INFECTION [None]
  - JOINT SWELLING [None]
  - HAEMATOMA [None]
  - UPPER RESPIRATORY TRACT INFECTION [None]
  - INCISION SITE PAIN [None]
  - VISION BLURRED [None]
  - INCISION SITE OEDEMA [None]
  - JOINT INJURY [None]
  - SPLINTER [None]
  - HYPOTENSION [None]
  - CELLULITIS [None]
  - INFECTION [None]
  - VARICOSE VEIN [None]
  - FEELING HOT [None]
  - HYPERTENSION [None]
  - NASOPHARYNGITIS [None]
  - OEDEMA PERIPHERAL [None]
